FAERS Safety Report 10185839 (Version 1)
Quarter: 2014Q2

REPORT INFORMATION
  Report Type: Spontaneous
  Country: US (occurrence: US)
  Receive Date: 20140521
  Receipt Date: 20140521
  Transmission Date: 20141212
  Serious: No
  Sender: FDA-Public Use
  Company Number: US-BAYER-2014-070088

PATIENT
  Age: 90 Year
  Sex: Female
  Weight: 63 kg

DRUGS (2)
  1. ALEVE TABLET [Suspect]
     Indication: ARTHRITIS
     Dosage: 2 DF, PRN
     Route: 048
     Dates: start: 2013
  2. ALEVE TABLET [Suspect]
     Indication: ARTHRITIS
     Dosage: 3 DF, ONCE
     Route: 048

REACTIONS (2)
  - Extra dose administered [None]
  - Inappropriate schedule of drug administration [None]
